FAERS Safety Report 9107346 (Version 1)
Quarter: 2013Q1

REPORT INFORMATION
  Report Type: Spontaneous
  Country: US (occurrence: US)
  Receive Date: 20130221
  Receipt Date: 20130221
  Transmission Date: 20140127
  Serious: No
  Sender: FDA-Public Use
  Company Number: US-PFIZER INC-2013064228

PATIENT
  Sex: Female

DRUGS (5)
  1. LYRICA [Suspect]
     Indication: FIBROMYALGIA
     Dosage: UNK
  2. CYMBALTA [Concomitant]
     Indication: FIBROMYALGIA
     Dosage: UNK
  3. TRAMADOL [Concomitant]
     Indication: FIBROMYALGIA
     Dosage: UNK
  4. HYDROCODONE [Concomitant]
     Indication: FIBROMYALGIA
     Dosage: UNK
  5. CYCLOBENZAPRINE [Concomitant]
     Indication: FIBROMYALGIA
     Dosage: UNK

REACTIONS (2)
  - Weight increased [Unknown]
  - Swelling [Unknown]
